FAERS Safety Report 8221321-0 (Version None)
Quarter: 2012Q1

REPORT INFORMATION
  Report Type: 
  Country: None (occurrence: None)
  Receive Date: 20120320
  Receipt Date: 20120315
  Transmission Date: 20120608
  Serious: Yes (Death, Other)
  Sender: FDA-Public Use
  Company Number: PHHY2012HN023761

PATIENT

DRUGS (1)
  1. DIOVAN HCT [Suspect]
     Indication: HYPERTENSION
     Dosage: 320/12.5MG

REACTIONS (4)
  - FALL [None]
  - DEATH [None]
  - CRANIOCEREBRAL INJURY [None]
  - HEAD INJURY [None]
